FAERS Safety Report 14263365 (Version 1)
Quarter: 2017Q4

REPORT INFORMATION
  Report Type: Report from Study
  Country: None (occurrence: US)
  Receive Date: 20171208
  Receipt Date: 20171208
  Transmission Date: 20180321
  Serious: Yes (Other)
  Sender: FDA-Public Use
  Company Number: US-ABBVIE-17K-163-2185835-00

PATIENT
  Sex: Female

DRUGS (2)
  1. HUMIRA [Suspect]
     Active Substance: ADALIMUMAB
     Indication: PSORIATIC ARTHROPATHY
     Route: 058
     Dates: start: 201702, end: 201708
  2. HUMIRA [Suspect]
     Active Substance: ADALIMUMAB
     Route: 058
     Dates: start: 201708

REACTIONS (8)
  - Joint stiffness [Unknown]
  - Rash [Recovering/Resolving]
  - Precancerous mucosal lesion [Unknown]
  - Contusion [Unknown]
  - Haematochezia [Recovered/Resolved]
  - Abdominal pain upper [Unknown]
  - Nausea [Unknown]
  - Arthralgia [Unknown]

NARRATIVE: CASE EVENT DATE: 2017
